FAERS Safety Report 22293881 (Version 3)
Quarter: 2023Q2

REPORT INFORMATION
  Report Type: Spontaneous
  Country: US (occurrence: US)
  Receive Date: 20230508
  Receipt Date: 20230608
  Transmission Date: 20230722
  Serious: No
  Sender: FDA-Public Use
  Company Number: US-GSK-US2023AMR064278

PATIENT
  Sex: Female

DRUGS (1)
  1. NUCALA [Suspect]
     Active Substance: MEPOLIZUMAB
     Indication: Product used for unknown indication
     Dosage: 100 MG/ML
     Dates: start: 20230428

REACTIONS (4)
  - Exposure via skin contact [Unknown]
  - Injection site pain [Recovered/Resolved]
  - Underdose [Unknown]
  - Product complaint [Unknown]
